FAERS Safety Report 5153192-3 (Version None)
Quarter: 2006Q4

REPORT INFORMATION
  Report Type: 
  Country: None (occurrence: None)
  Receive Date: 20061114
  Receipt Date: 20061102
  Transmission Date: 20070319
  Serious: Yes (Hospitalization)
  Sender: FDA-Public Use
  Company Number: GXKR2006JP07063

PATIENT
  Age: 14 Year
  Sex: Male
  Weight: 20 kg

DRUGS (3)
  1. PHENYTOIN [Suspect]
     Dosage: 200 MG, INTRAVENOUS
     Route: 042
  2. DIAZEPAM [Suspect]
     Indication: ANXIETY DISORDER
     Dosage: 5 MG, INFUSION
  3. SODIUM CHLORIDE 0.9% [Concomitant]

REACTIONS (9)
  - APPLICATION SITE OEDEMA [None]
  - ASTHENIA [None]
  - BLISTER [None]
  - FASCIOTOMY [None]
  - FLUSHING [None]
  - PERIPHERAL COLDNESS [None]
  - PETECHIAE [None]
  - PURPLE GLOVE SYNDROME [None]
  - SKIN DISCOLOURATION [None]
